FAERS Safety Report 14716214 (Version 2)
Quarter: 2018Q2

REPORT INFORMATION
  Report Type: Spontaneous
  Country: HU (occurrence: HU)
  Receive Date: 20180404
  Receipt Date: 20180507
  Transmission Date: 20180711
  Serious: Yes (Hospitalization, Other)
  Sender: FDA-Public Use
  Company Number: HU-MYLANLABS-2018M1020534

PATIENT
  Age: 58 Year
  Sex: Male

DRUGS (2)
  1. POTASSIUM [Interacting]
     Active Substance: POTASSIUM
     Indication: PRODUCT USED FOR UNKNOWN INDICATION
     Dosage: 6 TABLETS
     Route: 065
  2. SPIRONOLACTONE. [Suspect]
     Active Substance: SPIRONOLACTONE
     Indication: PRODUCT USED FOR UNKNOWN INDICATION
     Dosage: 150 MG

REACTIONS (6)
  - Ventricular arrhythmia [Recovered/Resolved]
  - Hyperkalaemia [Recovered/Resolved]
  - Cardiogenic shock [Recovered/Resolved]
  - Lactic acidosis [Recovered/Resolved]
  - Labelled drug-drug interaction medication error [Recovered/Resolved]
  - Syncope [Recovered/Resolved]
